FAERS Safety Report 10646077 (Version 1)
Quarter: 2014Q4

REPORT INFORMATION
  Report Type: Other
  Country: DE (occurrence: DE)
  Receive Date: 20141211
  Receipt Date: 20141211
  Transmission Date: 20150529
  Serious: Yes (Congenital Anomaly)
  Sender: FDA-Public Use
  Company Number: DE-MYLANLABS-2014M1012457

PATIENT

DRUGS (4)
  1. THYROXIN [Concomitant]
     Active Substance: LEVOTHYROXINE
     Indication: HYPOTHYROIDISM
     Dosage: UNK
     Route: 064
     Dates: start: 20130306, end: 20131209
  2. PROGYNOVA [Concomitant]
     Active Substance: ESTRADIOL VALERATE
     Indication: ASSISTED FERTILISATION
     Dosage: UNK
     Route: 064
  3. UTROGEST [Concomitant]
     Active Substance: PROGESTERONE
     Indication: ASSISTED FERTILISATION
     Dosage: UNK
     Route: 064
  4. METFORMIN [Suspect]
     Active Substance: METFORMIN HYDROCHLORIDE
     Indication: GLUCOSE TOLERANCE TEST ABNORMAL
     Dosage: UNK
     Route: 064

REACTIONS (3)
  - Small for dates baby [Unknown]
  - Brachydactyly [Not Recovered/Not Resolved]
  - Exposure during pregnancy [Unknown]

NARRATIVE: CASE EVENT DATE: 20131209
